FAERS Safety Report 18309208 (Version 1)
Quarter: 2020Q3

REPORT INFORMATION
  Report Type: Report from Study
  Country: DE (occurrence: DE)
  Receive Date: 20200924
  Receipt Date: 20200924
  Transmission Date: 20201103
  Serious: Yes (Hospitalization, Other)
  Sender: FDA-Public Use
  Company Number: DE-ASTRAZENECA-2020SF18985

PATIENT
  Age: 47 Year
  Sex: Female
  Weight: 90 kg

DRUGS (4)
  1. BYL719 [Suspect]
     Active Substance: ALPELISIB
     Indication: BREAST CANCER METASTATIC
     Dosage: 200.0MG UNKNOWN
     Route: 048
     Dates: start: 20200128, end: 20200716
  2. BYL719 [Suspect]
     Active Substance: ALPELISIB
     Indication: BREAST CANCER METASTATIC
     Dosage: 300.0MG UNKNOWN
     Route: 048
     Dates: start: 20191230, end: 20200106
  3. FULVESTRANT. [Suspect]
     Active Substance: FULVESTRANT
     Indication: BREAST CANCER METASTATIC
     Dosage: 500.0MG UNKNOWN
     Route: 030
     Dates: start: 20191216, end: 20200113
  4. DENOSUMAB [Concomitant]
     Active Substance: DENOSUMAB
     Indication: BREAST CANCER METASTATIC
     Dosage: UNK

REACTIONS (3)
  - Metastases to bone [Unknown]
  - Rash [Recovered/Resolved]
  - Hyperglycaemia [Not Recovered/Not Resolved]

NARRATIVE: CASE EVENT DATE: 20200106
